FAERS Safety Report 20529568 (Version 1)
Quarter: 2022Q1

REPORT INFORMATION
  Report Type: Spontaneous
  Country: AT (occurrence: AT)
  Receive Date: 20220301
  Receipt Date: 20220301
  Transmission Date: 20220423
  Serious: Yes (Other)
  Sender: FDA-Public Use
  Company Number: AT-BRISTOL-MYERS SQUIBB COMPANY-BMS-2021-021883

PATIENT
  Sex: Female

DRUGS (2)
  1. DASATINIB [Suspect]
     Active Substance: DASATINIB
     Indication: Chronic myeloid leukaemia
     Dosage: UNK
     Route: 065
  2. IMATINIB [Suspect]
     Active Substance: IMATINIB
     Indication: Chronic myeloid leukaemia
     Dosage: 1 MONTH
     Route: 065
     Dates: start: 20200616, end: 20200715

REACTIONS (4)
  - Acute kidney injury [Recovered/Resolved]
  - Pulmonary hypertension [Recovered/Resolved]
  - Drug intolerance [Unknown]
  - Cardiovascular disorder [Unknown]
